FAERS Safety Report 21534320 (Version 2)
Quarter: 2022Q4

REPORT INFORMATION
  Report Type: Report from Study
  Country: CN (occurrence: CN)
  Receive Date: 20221101
  Receipt Date: 20221103
  Transmission Date: 20230113
  Serious: Yes (Other)
  Sender: FDA-Public Use
  Company Number: CN-NOVARTISPH-NVSC2022CN179489

PATIENT
  Age: 50 Year
  Sex: Female
  Weight: 66.5 kg

DRUGS (26)
  1. NILOTINIB [Suspect]
     Active Substance: NILOTINIB
     Indication: Product used for unknown indication
     Dosage: NO TREATMENT
     Route: 065
  2. NILOTINIB [Suspect]
     Active Substance: NILOTINIB
     Dosage: 400 MG, UNKNOWN
     Route: 065
     Dates: start: 20220802, end: 20221024
  3. UNSPECIFIED INGREDIENT [Suspect]
     Active Substance: UNSPECIFIED INGREDIENT
     Indication: Chronic myeloid leukaemia
     Dosage: NO TREATMENT
     Route: 065
  4. DASATINIB [Suspect]
     Active Substance: DASATINIB
     Indication: Product used for unknown indication
     Dosage: 60 MG
     Route: 065
     Dates: start: 20220705
  5. PEGINTERFERON ALFA-2A [Suspect]
     Active Substance: PEGINTERFERON ALFA-2A
     Indication: Product used for unknown indication
     Dosage: UNK
     Route: 065
     Dates: start: 20220705
  6. ATROPINE SULFATE [Concomitant]
     Active Substance: ATROPINE SULFATE
     Indication: Uterine polyp
     Dosage: UNK
     Route: 065
     Dates: start: 20220808, end: 20220808
  7. ATROPINE SULFATE [Concomitant]
     Active Substance: ATROPINE SULFATE
     Indication: Uterine adhesions
     Route: 065
     Dates: start: 20220802
  8. AMOXICILLIN [Concomitant]
     Active Substance: AMOXICILLIN
     Indication: Headache
     Dosage: UNK
     Route: 065
     Dates: start: 20220704, end: 20220705
  9. AMOXICILLIN [Concomitant]
     Active Substance: AMOXICILLIN
     Indication: Toothache
  10. DEXTROSE [Concomitant]
     Active Substance: DEXTROSE
     Indication: Uterine polyp
     Dosage: UNK
     Route: 065
     Dates: start: 20220808, end: 20220808
  11. DEXTROSE [Concomitant]
     Active Substance: DEXTROSE
     Indication: Uterine adhesions
  12. FENTANYL CITRATE [Concomitant]
     Active Substance: FENTANYL CITRATE
     Indication: Uterine polyp
     Dosage: UNK
     Route: 065
     Dates: start: 20220808, end: 20220808
  13. FENTANYL CITRATE [Concomitant]
     Active Substance: FENTANYL CITRATE
     Indication: Uterine adhesions
  14. PROPOFOL [Concomitant]
     Active Substance: PROPOFOL
     Indication: Uterine polyp
     Dosage: UNK
     Route: 065
     Dates: start: 20220808, end: 20220808
  15. PROPOFOL [Concomitant]
     Active Substance: PROPOFOL
     Indication: Uterine adhesions
  16. CEFDINIR [Concomitant]
     Active Substance: CEFDINIR
     Indication: Infection prophylaxis
     Dosage: UNK
     Route: 065
     Dates: start: 20220809, end: 20220812
  17. ORNIDAZOLE [Concomitant]
     Active Substance: ORNIDAZOLE
     Indication: Infection prophylaxis
     Dosage: UNK
     Route: 065
     Dates: start: 20220809, end: 20220812
  18. LIDOCAINE HYDROCHLORIDE [Concomitant]
     Active Substance: LIDOCAINE HYDROCHLORIDE
     Indication: Uterine polyp
     Dosage: UNK
     Route: 065
     Dates: start: 20220808, end: 20220808
  19. LIDOCAINE HYDROCHLORIDE [Concomitant]
     Active Substance: LIDOCAINE HYDROCHLORIDE
     Indication: Uterine adhesions
  20. ROSUVASTATIN CALCIUM [Concomitant]
     Active Substance: ROSUVASTATIN CALCIUM
     Indication: Hypertriglyceridaemia
     Dosage: UNK
     Route: 065
     Dates: start: 20220718, end: 20220801
  21. ROSUVASTATIN CALCIUM [Concomitant]
     Active Substance: ROSUVASTATIN CALCIUM
     Indication: High density lipoprotein decreased
     Dosage: UNK
     Route: 065
     Dates: start: 20220802, end: 20220814
  22. BICYCLOL [Concomitant]
     Active Substance: BICYCLOL
     Indication: Gamma-glutamyltransferase increased
     Dosage: UNK
     Route: 065
     Dates: start: 20220815, end: 20220925
  23. BICYCLOL [Concomitant]
     Active Substance: BICYCLOL
     Indication: Aspartate aminotransferase increased
  24. INTERFERON ALFA NOS [Concomitant]
     Active Substance: INTERFERON ALFA-2A OR INTERFERON ALFA-2B
     Indication: Product used for unknown indication
     Dosage: 0.18 MG
     Route: 065
     Dates: start: 20220705
  25. SODIUM CHLORIDE [Concomitant]
     Active Substance: SODIUM CHLORIDE
     Indication: Uterine polyp
     Dosage: UNK
     Route: 065
     Dates: start: 20220808, end: 20220808
  26. SODIUM CHLORIDE [Concomitant]
     Active Substance: SODIUM CHLORIDE
     Indication: Uterine adhesions

REACTIONS (5)
  - Platelet count decreased [Recovered/Resolved]
  - Condition aggravated [Recovered/Resolved]
  - Platelet count decreased [Recovered/Resolved]
  - Platelet count decreased [Not Recovered/Not Resolved]
  - Platelet count decreased [Recovered/Resolved]

NARRATIVE: CASE EVENT DATE: 20220725
